FAERS Safety Report 5641687-5 (Version None)
Quarter: 2008Q1

REPORT INFORMATION
  Report Type: 
  Country: None (occurrence: None)
  Receive Date: 20080131
  Receipt Date: 20071009
  Transmission Date: 20080703
  Serious: No
  Sender: FDA-Public Use
  Company Number: PHEH2007US13409

PATIENT
  Age: 85 Year
  Sex: Female
  Weight: 48.1 kg

DRUGS (1)
  1. TEKTURNA [Suspect]
     Indication: HYPERTENSION
     Dosage: 150 MG

REACTIONS (2)
  - JOINT SWELLING [None]
  - VISION BLURRED [None]
